FAERS Safety Report 18136530 (Version 1)
Quarter: 2020Q3

REPORT INFORMATION
  Report Type: Spontaneous
  Country: DE (occurrence: DE)
  Receive Date: 20200811
  Receipt Date: 20200811
  Transmission Date: 20201103
  Serious: Yes (Hospitalization)
  Sender: FDA-Public Use
  Company Number: NVSC2020DE221623

PATIENT
  Age: 84 Year
  Sex: Female
  Weight: 65 kg

DRUGS (1)
  1. MTX 10 MG HEXAL INJEKT [Suspect]
     Active Substance: METHOTREXATE SODIUM
     Indication: PRODUCT USED FOR UNKNOWN INDICATION
     Dosage: UNK (NK MG / WOCHE, 1X)
     Route: 065

REACTIONS (5)
  - Tachycardia [Unknown]
  - Asthenia [Unknown]
  - General physical health deterioration [Unknown]
  - Heart rate increased [Unknown]
  - Atrial fibrillation [Unknown]
